FAERS Safety Report 5815573-1 (Version None)
Quarter: 2008Q3

REPORT INFORMATION
  Report Type: 
  Country: None (occurrence: None)
  Receive Date: 20080718
  Receipt Date: 20080708
  Transmission Date: 20090109
  Serious: Yes (Other)
  Sender: FDA-Public Use
  Company Number: US-PFIZER INC-2008058588

PATIENT
  Sex: Female
  Weight: 59 kg

DRUGS (5)
  1. LYRICA [Suspect]
     Indication: FIBROMYALGIA
  2. CELEBREX [Suspect]
     Indication: FIBROMYALGIA
  3. ABILIFY [Suspect]
     Indication: BIPOLAR DISORDER
  4. FLEXERIL [Concomitant]
  5. CORTISONE [Concomitant]

REACTIONS (4)
  - BIPOLAR I DISORDER [None]
  - IMPAIRED DRIVING ABILITY [None]
  - SENSORY LOSS [None]
  - WEIGHT INCREASED [None]
